FAERS Safety Report 13980664 (Version 1)
Quarter: 2017Q3

REPORT INFORMATION
  Report Type: Spontaneous
  Country: CA (occurrence: CA)
  Receive Date: 20170918
  Receipt Date: 20170918
  Transmission Date: 20171128
  Serious: Yes (Hospitalization, Other)
  Sender: FDA-Public Use
  Company Number: CA-ENDO PHARMACEUTICALS INC-2017-004947

PATIENT
  Age: 41 Year
  Sex: Male

DRUGS (1)
  1. ADRENALIN [Suspect]
     Active Substance: EPINEPHRINE
     Indication: ANAPHYLACTIC REACTION
     Dosage: 300 MICROGRAM, UNKNOWN
     Route: 030

REACTIONS (2)
  - Sinus tachycardia [Unknown]
  - Electrocardiogram ST segment depression [Unknown]
